FAERS Safety Report 22041014 (Version 1)
Quarter: 2023Q1

REPORT INFORMATION
  Report Type: Spontaneous
  Country: US (occurrence: None)
  Receive Date: 20230226
  Receipt Date: 20230226
  Transmission Date: 20230418
  Serious: Yes (Other)
  Sender: FDA-Public Use
  Company Number: None

PATIENT
  Age: 45 Year
  Sex: Female
  Weight: 123.75 kg

DRUGS (1)
  1. WEGOVY [Suspect]
     Active Substance: SEMAGLUTIDE
     Indication: Weight decreased
     Dates: start: 20230112, end: 20230223

REACTIONS (7)
  - Vomiting [None]
  - Diarrhoea [None]
  - Chills [None]
  - Fatigue [None]
  - Skin odour abnormal [None]
  - Eructation [None]
  - Taste disorder [None]

NARRATIVE: CASE EVENT DATE: 20230225
